FAERS Safety Report 7767129-1 (Version None)
Quarter: 2011Q3

REPORT INFORMATION
  Report Type: 
  Country: None (occurrence: None)
  Receive Date: 20110922
  Receipt Date: 20100824
  Transmission Date: 20111222
  Serious: No
  Sender: FDA-Public Use
  Company Number: US-ASTRAZENECA-2008UW04307

PATIENT
  Age: 16840 Day
  Sex: Male
  Weight: 102.1 kg

DRUGS (7)
  1. SEROQUEL [Suspect]
     Indication: ANXIETY
     Dosage: 400 TO 800 MG
     Route: 048
     Dates: start: 20040101, end: 20080326
  2. SEROQUEL [Suspect]
     Dosage: 200 TO 400 MG
     Route: 048
     Dates: start: 20050101, end: 20080301
  3. SEROQUEL [Suspect]
     Dosage: 200 TO 400 MG
     Route: 048
     Dates: start: 20050101, end: 20080301
  4. SEROQUEL [Suspect]
     Indication: SCHIZOPHRENIA
     Dosage: 400 TO 800 MG
     Route: 048
     Dates: start: 20040101, end: 20080326
  5. GEODON [Concomitant]
  6. SEROQUEL [Suspect]
     Dosage: 200 TO 400 MG
     Route: 048
     Dates: start: 20050101, end: 20080301
  7. SEROQUEL [Suspect]
     Indication: DEPRESSION
     Dosage: 400 TO 800 MG
     Route: 048
     Dates: start: 20040101, end: 20080326

REACTIONS (7)
  - WEIGHT INCREASED [None]
  - OBESITY [None]
  - BLOOD TRIGLYCERIDES INCREASED [None]
  - GLYCOSURIA [None]
  - TYPE 2 DIABETES MELLITUS [None]
  - DIABETES MELLITUS [None]
  - DIABETIC COMPLICATION [None]
